FAERS Safety Report 7860399-0 (Version None)
Quarter: 2011Q4

REPORT INFORMATION
  Report Type: 
  Country: None (occurrence: None)
  Receive Date: 20111027
  Receipt Date: 20111017
  Transmission Date: 20120403
  Serious: Yes (Death, Hospitalization)
  Sender: FDA-Public Use
  Company Number: PHHY2008NL37314

PATIENT
  Sex: Female
  Weight: 50.1 kg

DRUGS (4)
  1. SANDOSTATIN LAR [Suspect]
     Dosage: 30 MG, ONCE PER THREE WEEKS
     Route: 030
     Dates: start: 20080829
  2. DURAGESIC-100 [Concomitant]
     Dosage: UNK UKN, UNK
  3. SANDOSTATIN LAR [Suspect]
     Indication: CARCINOID TUMOUR
     Dosage: 30 MG, ONCE PER THREE WEEKS
     Route: 030
     Dates: start: 20070817
  4. OXYCODONE HCL [Concomitant]
     Dosage: UNK UKN, UNK

REACTIONS (1)
  - NEOPLASM MALIGNANT [None]
